FAERS Safety Report 6249278-2 (Version None)
Quarter: 2009Q2

REPORT INFORMATION
  Report Type: 
  Country: None (occurrence: None)
  Receive Date: 20090629
  Receipt Date: 20090305
  Transmission Date: 20091009
  Serious: No
  Sender: FDA-Public Use
  Company Number: US-BRISTOL-MYERS SQUIBB COMPANY-14531529

PATIENT
  Age: 49 Year
  Sex: Female

DRUGS (5)
  1. SPRYCEL [Suspect]
     Indication: CHRONIC MYELOID LEUKAEMIA
     Dates: start: 20090206
  2. GLEEVEC [Concomitant]
  3. DARVOCET [Concomitant]
  4. LEXAPRO [Concomitant]
  5. MOTRIN [Concomitant]

REACTIONS (2)
  - HEADACHE [None]
  - VOMITING [None]
